FAERS Safety Report 15775903 (Version 1)
Quarter: 2018Q4

REPORT INFORMATION
  Report Type: Spontaneous
  Country: JP (occurrence: JP)
  Receive Date: 20181231
  Receipt Date: 20181231
  Transmission Date: 20190205
  Serious: Yes (Hospitalization)
  Sender: FDA-Public Use
  Company Number: JP-ROCHE-2236827

PATIENT

DRUGS (2)
  1. XOFLUZA [Suspect]
     Active Substance: BALOXAVIR MARBOXIL
     Indication: INFLUENZA
     Route: 048
  2. MUCODYNE [Suspect]
     Active Substance: CARBOCYSTEINE
     Indication: INFLUENZA
     Route: 065

REACTIONS (1)
  - Drug eruption [Recovered/Resolved]
